FAERS Safety Report 8920016 (Version 2)
Quarter: 2013Q1

REPORT INFORMATION
  Report Type: Spontaneous
  Country: US (occurrence: US)
  Receive Date: 20121121
  Receipt Date: 20130125
  Transmission Date: 20140127
  Serious: No
  Sender: FDA-Public Use
  Company Number: US-009507513-1211USA007718

PATIENT
  Age: 62 Year
  Sex: Male

DRUGS (1)
  1. COSOPT [Suspect]
     Indication: GLAUCOMA
     Dosage: UNK
     Route: 047
     Dates: start: 20121115

REACTIONS (2)
  - Eye penetration [Unknown]
  - Product quality issue [Unknown]
